FAERS Safety Report 9607838 (Version 2)
Quarter: 2014Q1

REPORT INFORMATION
  Report Type: Spontaneous
  Country: US (occurrence: US)
  Receive Date: 20131009
  Receipt Date: 20140110
  Transmission Date: 20141002
  Serious: Yes (Other)
  Sender: FDA-Public Use
  Company Number: US-AMGEN-USASP2013070976

PATIENT
  Age: 30 Year
  Sex: Female
  Weight: 71.2 kg

DRUGS (6)
  1. ENBREL [Suspect]
     Indication: PRODUCT USED FOR UNKNOWN INDICATION
     Dosage: 50 MG, QWK
     Route: 065
     Dates: start: 200809, end: 200909
  2. HYDROXYCHLOROQUINE [Concomitant]
     Dosage: 200 MG, BID
     Dates: start: 1999
  3. PREDNISONE [Concomitant]
     Dosage: 5 MG, QD
     Dates: start: 199909
  4. CALCIUM [Concomitant]
     Dosage: UNK
  5. PRENATAL                           /00231801/ [Concomitant]
     Dosage: ONE DAILY
     Dates: start: 2009, end: 2013
  6. FOLIC ACID [Concomitant]
     Dosage: 400 MG,
     Dates: start: 2009, end: 2013

REACTIONS (1)
  - Abortion spontaneous [Recovered/Resolved]
